FAERS Safety Report 7339295-3 (Version None)
Quarter: 2011Q1

REPORT INFORMATION
  Report Type: 
  Country: None (occurrence: None)
  Receive Date: 20110308
  Receipt Date: 20110302
  Transmission Date: 20110831
  Serious: Yes (Death, Other)
  Sender: FDA-Public Use
  Company Number: US-PFIZER INC-2011009599

PATIENT
  Sex: Male

DRUGS (9)
  1. TRICOR [Concomitant]
     Indication: BLOOD CHOLESTEROL INCREASED
     Dosage: UNK
  2. NORVASC [Concomitant]
     Indication: BLOOD PRESSURE ABNORMAL
     Dosage: UNK
  3. DILAUDID [Concomitant]
     Dosage: UNK
  4. LOPRESSOR [Concomitant]
     Indication: BLOOD PRESSURE ABNORMAL
     Dosage: UNK
  5. LIPITOR [Suspect]
     Indication: BLOOD CHOLESTEROL INCREASED
     Dosage: UNK
  6. NORVASC [Concomitant]
     Indication: CARDIAC DISORDER
  7. POTASSIUM [Concomitant]
     Dosage: UNK
  8. PRANDIN [Concomitant]
     Indication: DIABETES MELLITUS
     Dosage: UNK
  9. LASIX [Concomitant]
     Indication: CARDIAC DISORDER
     Dosage: UNK

REACTIONS (2)
  - DEATH [None]
  - RENAL IMPAIRMENT [None]
